FAERS Safety Report 5607508-1 (Version None)
Quarter: 2008Q1

REPORT INFORMATION
  Report Type: 
  Country: None (occurrence: None)
  Receive Date: 20080125
  Receipt Date: 20080110
  Transmission Date: 20080703
  Serious: Yes (Hospitalization)
  Sender: FDA-Public Use
  Company Number: 2008000082

PATIENT
  Age: 58 Year
  Sex: Male

DRUGS (4)
  1. ERLOTINIB (ERLOTINIB HC1) (100 MILLIGRAM, TABLET) (ERLOTINIB HC1) [Suspect]
     Indication: RECTAL CANCER
     Dosage: QD, ORAL
     Route: 048
     Dates: start: 20070806, end: 20070913
  2. BEVACIZUMAB (5 MILLIGRAM (S)/ KILOGRAM, INJECTION FOR INFUSION) [Suspect]
     Indication: RECTAL CANCER
     Dosage: Q2W, INTRAVENOUS
     Route: 042
     Dates: start: 20070806, end: 20070913
  3. FLUOROURACIL [Concomitant]
  4. RADIOTHERAPY [Concomitant]

REACTIONS (3)
  - ABDOMINAL PAIN [None]
  - INTESTINAL PERFORATION [None]
  - PYREXIA [None]
